FAERS Safety Report 8678735 (Version 2)
Quarter: 2014Q3

REPORT INFORMATION
  Report Type: Spontaneous
  Country: US (occurrence: US)
  Receive Date: 20120723
  Receipt Date: 20140806
  Transmission Date: 20150326
  Serious: Yes (Hospitalization, Other)
  Sender: FDA-Public Use
  Company Number: US-009507513-1207USA006563

PATIENT
  Sex: Female
  Weight: 55.74 kg

DRUGS (1)
  1. NUVARING [Suspect]
     Active Substance: ETHINYL ESTRADIOL\ETONOGESTREL
     Indication: CONTRACEPTION
     Dosage: 0.12-0.015 MG FOR 3 WEEKS
     Route: 067
     Dates: start: 200908, end: 20100520

REACTIONS (10)
  - Scoliosis [Unknown]
  - Anxiety disorder [Unknown]
  - Embolism venous [Unknown]
  - Impulsive behaviour [Unknown]
  - Arthralgia [Unknown]
  - Pain [Unknown]
  - Pulmonary embolism [Unknown]
  - Pleurisy [Unknown]
  - Substance use [Unknown]
  - Depression [Unknown]

NARRATIVE: CASE EVENT DATE: 201004
